FAERS Safety Report 25823329 (Version 1)
Quarter: 2025Q3

REPORT INFORMATION
  Report Type: Spontaneous
  Country: US (occurrence: US)
  Receive Date: 20250919
  Receipt Date: 20250919
  Transmission Date: 20251020
  Serious: No
  Sender: VIVUS
  Company Number: US-VIVUS, Inc.-2025V1000223

PATIENT
  Sex: Female
  Weight: 121.54 kg

DRUGS (3)
  1. QSYMIA [Suspect]
     Active Substance: PHENTERMINE HYDROCHLORIDE\TOPIRAMATE
     Indication: Weight decreased
     Dosage: 1 DOSAGE FORMS, QD
     Route: 048
  2. QSYMIA [Suspect]
     Active Substance: PHENTERMINE HYDROCHLORIDE\TOPIRAMATE
     Indication: Weight decreased
     Dosage: 1 DOSAGE FORMS, QD
     Route: 048
     Dates: start: 202410
  3. CELEXA [Concomitant]
     Active Substance: CITALOPRAM HYDROBROMIDE
     Indication: Anxiety
     Route: 065

REACTIONS (2)
  - Upper-airway cough syndrome [Not Recovered/Not Resolved]
  - Sinusitis [Not Recovered/Not Resolved]
